FAERS Safety Report 8515666 (Version 2)
Quarter: 2012Q4

REPORT INFORMATION
  Report Type: 
  Country: US (occurrence: US)
  Receive Date: 20120417
  Receipt Date: 20120906
  Transmission Date: 20130627
  Serious: Yes (Other)
  Sender: FDA-Public Use
  Company Number: US-BAYER-2012-035338

PATIENT
  Age: 62 Year
  Sex: Male

DRUGS (6)
  1. STAXYN (FDT/ODT) [Suspect]
     Indication: ERECTILE DYSFUNCTION
     Dosage: 10 mg, ONCE
     Route: 048
     Dates: start: 20120407, end: 20120407
  2. CLONAZEPAM [Concomitant]
  3. VITAMINS [Concomitant]
  4. PREVACID [Concomitant]
  5. VITAMIN B NOS [Concomitant]
  6. OMEGA 3 [Concomitant]

REACTIONS (2)
  - Deafness unilateral [Not Recovered/Not Resolved]
  - Erectile dysfunction [Not Recovered/Not Resolved]
